FAERS Safety Report 25448049 (Version 1)
Quarter: 2025Q2

REPORT INFORMATION
  Report Type: Spontaneous
  Country: TW (occurrence: TW)
  Receive Date: 20250617
  Receipt Date: 20250617
  Transmission Date: 20250717
  Serious: Yes (Other)
  Sender: ROCHE
  Company Number: TW-ROCHE-10000307308

PATIENT
  Age: 60 Year
  Sex: Male

DRUGS (1)
  1. GLOFITAMAB [Suspect]
     Active Substance: GLOFITAMAB
     Indication: Diffuse large B-cell lymphoma
     Route: 065
     Dates: start: 20250531

REACTIONS (2)
  - Immune effector cell-associated neurotoxicity syndrome [Unknown]
  - Immune effector cell-associated HLH-like syndrome [Unknown]

NARRATIVE: CASE EVENT DATE: 20250605
